FAERS Safety Report 6189221-8 (Version None)
Quarter: 2009Q2

REPORT INFORMATION
  Report Type: 
  Country: None (occurrence: None)
  Receive Date: 20090512
  Receipt Date: 20090429
  Transmission Date: 20091009
  Serious: Yes (Hospitalization)
  Sender: FDA-Public Use
  Company Number: IDA-00206

PATIENT
  Age: 72 Year
  Sex: Male

DRUGS (12)
  1. INDERAL [Suspect]
     Indication: VARICES OESOPHAGEAL
     Dosage: 160 MG DAILY ORAL, TABLET
     Route: 048
     Dates: start: 20090220, end: 20090222
  2. CLEXANE [Concomitant]
  3. KONAKION [Concomitant]
  4. NEXIUM [Concomitant]
     Route: 048
  5. FOLVITE       (FOLIC ACID) [Concomitant]
  6. BECOZYM       (VIT B NOS [Concomitant]
  7. BENERVA  (THIAMINE HCL) [Concomitant]
  8. ALDACTONE [Concomitant]
  9. POTASSIUM CHLORIDE [Concomitant]
  10. TORSEMIDE [Concomitant]
  11. ASPIRIN     (ACETYLSALICYCLIC ACCID) [Concomitant]
  12. DOSPIR         (IPRATROPIUM BROMIDE, SALBUTAMOL SULFATE [Concomitant]

REACTIONS (2)
  - ELECTROCARDIOGRAM QT PROLONGED [None]
  - HYPOTENSION [None]
